FAERS Safety Report 16444916 (Version 1)
Quarter: 2019Q2

REPORT INFORMATION
  Report Type: Spontaneous
  Country: CN (occurrence: CN)
  Receive Date: 20190618
  Receipt Date: 20190618
  Transmission Date: 20190711
  Serious: Yes (Other)
  Sender: FDA-Public Use
  Company Number: CN-PFIZER INC-2019258616

PATIENT
  Age: 55 Year
  Sex: Female
  Weight: 55 kg

DRUGS (1)
  1. TYGACIL [Suspect]
     Active Substance: TIGECYCLINE
     Indication: SEPTIC SHOCK
     Dosage: 50 MG, 2X/DAY
     Route: 041
     Dates: start: 20190522

REACTIONS (3)
  - Off label use [Unknown]
  - Drug-induced liver injury [Recovering/Resolving]
  - Product use in unapproved indication [Unknown]

NARRATIVE: CASE EVENT DATE: 20190524
